FAERS Safety Report 10064577 (Version 3)
Quarter: 2015Q3

REPORT INFORMATION
  Report Type: Spontaneous
  Country: SE (occurrence: SE)
  Receive Date: 20140404
  Receipt Date: 20150924
  Transmission Date: 20151125
  Serious: Yes (Other)
  Sender: FDA-Public Use
  Company Number: SE-20140002

PATIENT
  Age: 69 Year
  Sex: Female

DRUGS (1)
  1. DOTAREM [Suspect]
     Active Substance: GADOTERATE MEGLUMINE
     Indication: NUCLEAR MAGNETIC RESONANCE IMAGING
     Route: 042
     Dates: start: 20140312, end: 20140312

REACTIONS (6)
  - Cold sweat [Unknown]
  - Chills [Unknown]
  - Nausea [Unknown]
  - Hypersensitivity [Unknown]
  - Dizziness [Unknown]
  - Erythema [Unknown]

NARRATIVE: CASE EVENT DATE: 20140312
